FAERS Safety Report 23168073 (Version 1)
Quarter: 2023Q4

REPORT INFORMATION
  Report Type: Spontaneous
  Country: GB (occurrence: GB)
  Receive Date: 20231109
  Receipt Date: 20231109
  Transmission Date: 20240110
  Serious: Yes (Other)
  Sender: FDA-Public Use
  Company Number: GB-CELLTRION INC.-2023GB020290

PATIENT

DRUGS (5)
  1. YUFLYMA [Suspect]
     Active Substance: ADALIMUMAB-AATY
     Indication: Product used for unknown indication
     Dosage: 4 X 40MG (STARTED TAKING THIS DRUG ON THE 10TH OF OCTOBER)
     Dates: start: 20231010
  2. YUFLYMA [Suspect]
     Active Substance: ADALIMUMAB-AATY
     Dosage: 2 X 40MG
     Dates: start: 20231024
  3. ATORVASTATIN [Concomitant]
     Active Substance: ATORVASTATIN
     Dosage: 10 MG, DAILY
     Route: 048
     Dates: start: 2019
  4. FINASTERIDE [Concomitant]
     Active Substance: FINASTERIDE
     Dosage: 1 MG, DAILY
     Route: 048
     Dates: start: 2019
  5. MESALAMINE [Concomitant]
     Active Substance: MESALAMINE
     Dosage: 800 MG X 6, DAILY
     Route: 048
     Dates: start: 1992

REACTIONS (7)
  - Haematochezia [Unknown]
  - Nail disorder [Not Recovered/Not Resolved]
  - Onychalgia [Not Recovered/Not Resolved]
  - Rhinalgia [Not Recovered/Not Resolved]
  - Epistaxis [Not Recovered/Not Resolved]
  - Defaecation urgency [Unknown]
  - Furuncle [Unknown]

NARRATIVE: CASE EVENT DATE: 20231011
